FAERS Safety Report 17735236 (Version 1)
Quarter: 2020Q2

REPORT INFORMATION
  Report Type: Spontaneous
  Country: US (occurrence: US)
  Receive Date: 20200501
  Receipt Date: 20200501
  Transmission Date: 20200714
  Serious: Yes (Other)
  Sender: FDA-Public Use
  Company Number: US-ASTRAZENECA-2020SE57401

PATIENT
  Age: 800 Month
  Sex: Female

DRUGS (7)
  1. LANTUS [Concomitant]
     Active Substance: INSULIN GLARGINE
     Dosage: 4 UNITS
  2. FARXIGA [Suspect]
     Active Substance: DAPAGLIFLOZIN PROPANEDIOL
     Indication: TYPE 2 DIABETES MELLITUS
     Route: 048
  3. ENAPRIL [Concomitant]
     Active Substance: ENALAPRIL
     Indication: BLOOD PRESSURE MEASUREMENT
  4. SYMVASTATIN [Concomitant]
     Indication: BLOOD CHOLESTEROL
  5. LANTUS [Concomitant]
     Active Substance: INSULIN GLARGINE
     Dosage: 6 UNITS
  6. LANTUS [Concomitant]
     Active Substance: INSULIN GLARGINE
     Dosage: 12 UNITS
  7. METFORMIN [Concomitant]
     Active Substance: METFORMIN HYDROCHLORIDE
     Indication: DIABETES MELLITUS

REACTIONS (2)
  - Hyperhidrosis [Unknown]
  - Postprandial hypoglycaemia [Not Recovered/Not Resolved]

NARRATIVE: CASE EVENT DATE: 202004
